FAERS Safety Report 10027624 (Version 1)
Quarter: 2014Q1

REPORT INFORMATION
  Report Type: Spontaneous
  Country: BG (occurrence: BG)
  Receive Date: 20140321
  Receipt Date: 20140321
  Transmission Date: 20141002
  Serious: Yes (Death)
  Sender: FDA-Public Use
  Company Number: BG-BEH-2014041206

PATIENT
  Age: 46 Year
  Sex: Male

DRUGS (1)
  1. HUMAN ALBUMIN [Suspect]
     Indication: WEIL^S DISEASE

REACTIONS (1)
  - Drug ineffective for unapproved indication [Fatal]
